FAERS Safety Report 6590719-9 (Version None)
Quarter: 2010Q2

REPORT INFORMATION
  Report Type: 
  Country: None (occurrence: None)
  Receive Date: 20100219
  Receipt Date: 20100209
  Transmission Date: 20101027
  Serious: Yes (Hospitalization)
  Sender: FDA-Public Use
  Company Number: US-JNJFOC-20100106311

PATIENT
  Age: 9 Month
  Sex: Male
  Weight: 7.71 kg

DRUGS (2)
  1. CONCENTRATED TYLENOL INFANT DROPS [Suspect]
     Indication: TEETHING
     Dosage: 80 MG, TWICE DAILY, THEN 80 MG ONCE DAILY ON AND OFF
     Route: 048
  2. CONCENTRATED TYLENOL INFANT DROPS [Suspect]
     Indication: PYREXIA
     Dosage: 80 MG, TWICE DAILY, THEN 80 MG ONCE DAILY ON AND OFF
     Route: 048

REACTIONS (3)
  - GLUCOSE-6-PHOSPHATE DEHYDROGENASE DEFICIENCY [None]
  - HAEMOGLOBIN DECREASED [None]
  - TRANSMISSION OF AN INFECTIOUS AGENT VIA A MEDICINAL PRODUCT [None]
